FAERS Safety Report 4788238-5 (Version None)
Quarter: 2005Q4

REPORT INFORMATION
  Report Type: 
  Country: None (occurrence: None)
  Receive Date: 20051003
  Receipt Date: 20050922
  Transmission Date: 20060501
  Serious: Yes (Hospitalization)
  Sender: FDA-Public Use
  Company Number: FRWYE001623SEP05

PATIENT
  Age: 81 Year
  Sex: Male

DRUGS (10)
  1. EFFEXOR [Suspect]
     Dosage: 2 DOSE 1X PER 1 DAY ORAL
     Route: 048
     Dates: start: 20020101, end: 20050330
  2. FUROSEMIDE [Suspect]
     Dosage: 20 MG 2X PER 1 DAY ORAL
     Route: 048
     Dates: start: 20050204, end: 20050330
  3. REMINYL [Suspect]
     Dosage: 12 MG 2X PER 1 DAY ORAL
     Route: 048
     Dates: start: 20041222, end: 20050330
  4. RISPERDAL [Suspect]
     Dosage: 0.5 MG 1X PER 1 DAY ORAL
     Route: 048
     Dates: start: 20041222, end: 20050330
  5. EBIXA                (MEMANTINE HYDROCHLORIDE) [Concomitant]
  6. RAMIPRIL [Concomitant]
  7. OMEPRAZOLE [Concomitant]
  8. PLAVIX [Concomitant]
  9. ARCALION (BISBUTIAMINE) [Concomitant]
  10. ACETAMINOPHEN W/ PROPOXYPHENE HCL [Concomitant]

REACTIONS (16)
  - ABULIA [None]
  - ALANINE AMINOTRANSFERASE INCREASED [None]
  - ASPARTATE AMINOTRANSFERASE INCREASED [None]
  - ASTHENIA [None]
  - BLOOD ALKALINE PHOSPHATASE INCREASED [None]
  - BLOOD AMYLASE INCREASED [None]
  - BLOOD BILIRUBIN INCREASED [None]
  - BLOOD SODIUM INCREASED [None]
  - DEHYDRATION [None]
  - FALL [None]
  - GAMMA-GLUTAMYLTRANSFERASE INCREASED [None]
  - GENERAL PHYSICAL HEALTH DETERIORATION [None]
  - ORTHOSTATIC HYPOTENSION [None]
  - PROTEIN TOTAL INCREASED [None]
  - RENAL FAILURE ACUTE [None]
  - WHITE BLOOD CELL COUNT INCREASED [None]
